FAERS Safety Report 4474217-4 (Version None)
Quarter: 2004Q4

REPORT INFORMATION
  Report Type: 
  Country: None (occurrence: None)
  Receive Date: 20041008
  Receipt Date: 20040923
  Transmission Date: 20050328
  Serious: Yes (Hospitalization, Other)
  Sender: FDA-Public Use
  Company Number: L04-ESP-06223-01

PATIENT
  Sex: Male

DRUGS (3)
  1. CITALOPRAM [Suspect]
     Indication: ANXIETY
     Dosage: 20 MG QD PO
     Route: 048
  2. CITALOPRAM [Suspect]
     Indication: DEPRESSION
     Dosage: 20 MG QD PO
     Route: 048
  3. CITALOPRAM [Suspect]
     Indication: PANIC ATTACK
     Dosage: 20 MG QD PO
     Route: 048

REACTIONS (6)
  - BILIRUBINURIA [None]
  - BLOOD CREATINE PHOSPHOKINASE INCREASED [None]
  - HAEMOGLOBINURIA [None]
  - KETONURIA [None]
  - OLIGURIA [None]
  - URINE ANALYSIS ABNORMAL [None]
